FAERS Safety Report 17868685 (Version 1)
Quarter: 2020Q2

REPORT INFORMATION
  Report Type: Spontaneous
  Country: US (occurrence: US)
  Receive Date: 20200605
  Receipt Date: 20200605
  Transmission Date: 20200714
  Serious: Yes (Other)
  Sender: FDA-Public Use
  Company Number: None

PATIENT
  Age: 62 Year
  Sex: Male
  Weight: 95.6 kg

DRUGS (20)
  1. REMDESIVIR. [Suspect]
     Active Substance: REMDESIVIR
     Indication: COVID-19
     Route: 042
     Dates: start: 20200601, end: 20200601
  2. ENOXAPARIN [Concomitant]
     Active Substance: ENOXAPARIN
     Dates: start: 20200531, end: 20200605
  3. ACETYLCYSTEINE PO [Concomitant]
     Dates: start: 20200531, end: 20200601
  4. ACETAMINOPHEN ORAL TABLETS [Concomitant]
     Dates: start: 20200531, end: 20200605
  5. CEFTRIAXONE. [Concomitant]
     Active Substance: CEFTRIAXONE
     Dates: start: 20200531, end: 20200531
  6. INSULIN LISPRO--SLIDING SCALE [Concomitant]
     Dates: start: 20200531, end: 20200605
  7. ACETAMINOPHEN SUPPOSITORIES [Concomitant]
     Dates: start: 20200531, end: 20200531
  8. PROPOFOL DRIP [Concomitant]
     Active Substance: PROPOFOL
     Dates: start: 20200531, end: 20200602
  9. SODIUM CHLORIDE DRIP [Concomitant]
     Dates: start: 20200531, end: 20200605
  10. REMDESIVIR. [Suspect]
     Active Substance: REMDESIVIR
     Indication: COVID-19
     Dosage: ?          OTHER FREQUENCY:ONCE;?
     Route: 042
     Dates: start: 20200531, end: 20200531
  11. ALBUTEROL INHALER [Concomitant]
     Active Substance: ALBUTEROL
     Dates: start: 20200531, end: 20200605
  12. ASPIRIN. [Concomitant]
     Active Substance: ASPIRIN
     Dates: start: 20200531, end: 20200605
  13. IPRATROPIUM INHALER [Concomitant]
     Active Substance: IPRATROPIUM BROMIDE
     Dates: start: 20200531, end: 20200605
  14. METHYLPREDNISOLONE SODIUM SUCCINATE (X 1 DOSE) [Concomitant]
     Dates: start: 20200531, end: 20200531
  15. D50W PRN HYPOGLYCEMIA [Concomitant]
     Dates: start: 20200531, end: 20200605
  16. ETOMIDATE (1 DOSE FOR INTUBATION) [Concomitant]
     Dates: start: 20200531, end: 20200531
  17. HYDROMORPHONE DRIP [Concomitant]
     Dates: start: 20200531, end: 20200605
  18. ZOSYN 3.375 G IV [Concomitant]
     Dates: start: 20200531, end: 20200605
  19. AZITHROMYCIN ANHYDROUS. [Concomitant]
     Active Substance: AZITHROMYCIN ANHYDROUS
     Dates: start: 20200531, end: 20200605
  20. ROCURONIUM (1 DOSE FOR INTUBATION) [Concomitant]
     Dates: start: 20200531, end: 20200531

REACTIONS (2)
  - Acute kidney injury [None]
  - Shock [None]

NARRATIVE: CASE EVENT DATE: 20200601
